FAERS Safety Report 16470357 (Version 1)
Quarter: 2019Q2

REPORT INFORMATION
  Report Type: Spontaneous
  Country: BR (occurrence: BR)
  Receive Date: 20190624
  Receipt Date: 20190624
  Transmission Date: 20190711
  Serious: Yes (Other)
  Sender: FDA-Public Use
  Company Number: BR-009507513-1906BRA007638

PATIENT
  Sex: Female

DRUGS (1)
  1. LOSARTAN POTASSIUM. [Suspect]
     Active Substance: LOSARTAN POTASSIUM
     Indication: HYPERTENSION
     Dosage: 1 TABLET DAILY
     Route: 048

REACTIONS (4)
  - Depression [Unknown]
  - Diabetes mellitus [Unknown]
  - Sleep disorder [Unknown]
  - Adverse event [Unknown]
